FAERS Safety Report 22623907 (Version 1)
Quarter: 2023Q2

REPORT INFORMATION
  Report Type: Spontaneous
  Country: US (occurrence: US)
  Receive Date: 20230621
  Receipt Date: 20230621
  Transmission Date: 20230721
  Serious: No
  Sender: FDA-Public Use
  Company Number: US-PROVENTION BIO, INC.-US-PRAG-23-00033

PATIENT
  Age: 19 Year
  Sex: Male

DRUGS (1)
  1. TZIELD [Suspect]
     Active Substance: TEPLIZUMAB-MZWV
     Indication: Diabetes prophylaxis
     Dosage: 750 MICROGRAM, SINGLE
     Route: 042
     Dates: start: 20230508, end: 20230508

REACTIONS (3)
  - Fatigue [Unknown]
  - Dose calculation error [Unknown]
  - Incorrect dose administered [None]

NARRATIVE: CASE EVENT DATE: 20230508
